FAERS Safety Report 22079346 (Version 1)
Quarter: 2023Q1

REPORT INFORMATION
  Report Type: Spontaneous
  Country: US (occurrence: US)
  Receive Date: 20230309
  Receipt Date: 20230309
  Transmission Date: 20230417
  Serious: No
  Sender: FDA-Public Use
  Company Number: US-PFIZER INC-PV202300038740

PATIENT
  Age: 61 Year
  Sex: Female

DRUGS (1)
  1. GENOTROPIN [Suspect]
     Active Substance: SOMATROPIN
     Dosage: 0.6 MG, DAILY

REACTIONS (4)
  - Drug dose omission by device [Unknown]
  - Device power source issue [Unknown]
  - Device mechanical issue [Unknown]
  - Device use issue [Unknown]
